FAERS Safety Report 11339682 (Version 1)
Quarter: 2015Q3

REPORT INFORMATION
  Report Type: Spontaneous
  Country: IL (occurrence: None)
  Receive Date: 20150803
  Receipt Date: 20150803
  Transmission Date: 20151125
  Serious: Yes (Death, Hospitalization)
  Sender: FDA-Public Use
  Company Number: IL2015K4783LIT

PATIENT
  Age: 88 Year
  Sex: Female

DRUGS (2)
  1. LANSOPRAZOLE  WORLD (LANSOPRAZOLE) UNKNOWN [Suspect]
     Active Substance: LANSOPRAZOLE
  2. METHOTREXATE [Suspect]
     Active Substance: METHOTREXATE
     Indication: PSORIATIC ARTHROPATHY

REACTIONS (3)
  - Mucosal inflammation [None]
  - Toxicity to various agents [None]
  - Pancytopenia [None]
